FAERS Safety Report 5044603-2 (Version None)
Quarter: 2006Q2

REPORT INFORMATION
  Report Type: 
  Country: None (occurrence: None)
  Receive Date: 20060629
  Receipt Date: 20060608
  Transmission Date: 20061013
  Serious: Yes (Life-Threatening, Hospitalization)
  Sender: FDA-Public Use
  Company Number: 601#1#2006-00003

PATIENT
  Age: 53 Year
  Sex: Male

DRUGS (3)
  1. ALPROSTADIL [Suspect]
     Indication: PERIPHERAL ARTERIAL OCCLUSIVE DISEASE
     Dosage: 60 MCG (20 MCG 3 IN 3 HOUR(S))
     Route: 042
     Dates: start: 20060314, end: 20060330
  2. ASPIRIN [Concomitant]
  3. PENTOXIFYLLINE [Concomitant]

REACTIONS (6)
  - BODY TEMPERATURE INCREASED [None]
  - CARDIAC FAILURE [None]
  - INFUSION RELATED REACTION [None]
  - LOCALISED INFECTION [None]
  - LUNG INFILTRATION [None]
  - MYOCARDITIS [None]
